FAERS Safety Report 8097505-1 (Version None)
Quarter: 2012Q1

REPORT INFORMATION
  Report Type: 
  Country: None (occurrence: None)
  Receive Date: 20120129
  Receipt Date: 20120119
  Transmission Date: 20120608
  Serious: Yes (Hospitalization)
  Sender: FDA-Public Use
  Company Number: JP-BRISTOL-MYERS SQUIBB COMPANY-16350522

PATIENT
  Age: 56 Year
  Sex: Male

DRUGS (2)
  1. ALLOPURINOL [Concomitant]
     Route: 048
     Dates: start: 20111115, end: 20120119
  2. HYDREA [Suspect]
     Indication: POLYCYTHAEMIA VERA
     Route: 048
     Dates: start: 20111115, end: 20120119

REACTIONS (1)
  - POLYARTHRITIS [None]
